FAERS Safety Report 10432256 (Version 2)
Quarter: 2015Q4

REPORT INFORMATION
  Report Type: Spontaneous
  Country: US (occurrence: US)
  Receive Date: 20140905
  Receipt Date: 20151019
  Transmission Date: 20160304
  Serious: Yes (Other)
  Sender: FDA-Public Use
  Company Number: US-BAYER-2014-132869

PATIENT
  Age: 58 Year
  Sex: Female

DRUGS (1)
  1. BETASERON [Suspect]
     Active Substance: INTERFERON BETA-1B
     Indication: MULTIPLE SCLEROSIS
     Dosage: 0.3 MG, QOD
     Route: 058
     Dates: start: 20110825

REACTIONS (12)
  - Injection site pain [None]
  - Gait disturbance [None]
  - Injection site bruising [None]
  - Injection site pain [None]
  - Motor dysfunction [None]
  - Injection site bruising [None]
  - Fatigue [None]
  - Multiple sclerosis relapse [None]
  - Visual impairment [None]
  - Injection site pain [None]
  - Injection site nerve damage [None]
  - Injection site erythema [None]

NARRATIVE: CASE EVENT DATE: 201507
